FAERS Safety Report 7407628-5 (Version None)
Quarter: 2011Q2

REPORT INFORMATION
  Report Type: 
  Country: None (occurrence: None)
  Receive Date: 20110412
  Receipt Date: 20110407
  Transmission Date: 20111010
  Serious: Yes (Other)
  Sender: FDA-Public Use
  Company Number: US-CEPHALON-2009008201

PATIENT
  Sex: Male
  Weight: 104 kg

DRUGS (8)
  1. AMLODIPINE BESYLATE [Concomitant]
     Indication: HYPERTENSION
     Route: 048
     Dates: start: 20080101
  2. ALLEGRA [Concomitant]
     Indication: MULTIPLE ALLERGIES
     Route: 048
     Dates: start: 20070301
  3. PROVIGIL [Suspect]
     Indication: SLEEP APNOEA SYNDROME
     Route: 048
     Dates: start: 20080115, end: 20080201
  4. SINGULAIR [Concomitant]
     Indication: MULTIPLE ALLERGIES
     Route: 048
     Dates: start: 20080101
  5. SEROQUEL [Concomitant]
     Indication: DEPRESSION
     Route: 048
     Dates: start: 20080101
  6. LYRICA [Concomitant]
     Indication: FIBROMYALGIA
     Route: 048
  7. ALPRAZOLAM [Concomitant]
     Indication: DEPRESSION
     Route: 048
     Dates: start: 20030101
  8. TRAMADOL HCL [Concomitant]
     Indication: OSTEOARTHRITIS
     Route: 048
     Dates: start: 20080101

REACTIONS (3)
  - DYSPNOEA [None]
  - ANXIETY [None]
  - PANIC ATTACK [None]
